FAERS Safety Report 23436448 (Version 3)
Quarter: 2024Q1

REPORT INFORMATION
  Report Type: Spontaneous
  Country: CH (occurrence: CH)
  Receive Date: 20240124
  Receipt Date: 20240322
  Transmission Date: 20240409
  Serious: Yes (Hospitalization)
  Sender: FDA-Public Use
  Company Number: CH-ABBVIE-5597864

PATIENT
  Age: 81 Year
  Sex: Male
  Weight: 81 kg

DRUGS (6)
  1. SKYRIZI [Suspect]
     Active Substance: RISANKIZUMAB-RZAA
     Indication: Psoriasis
     Route: 058
     Dates: start: 2022
  2. LEVOTHYROXINE [Concomitant]
     Active Substance: LEVOTHYROXINE\LEVOTHYROXINE SODIUM
     Indication: Product used for unknown indication
     Dosage: LEVOTHYROXINUM NATRICUM (ELTROXIN)
     Route: 065
  3. Novalgin [Concomitant]
     Indication: Back pain
     Dosage: METAMIZOL-NATRIUM (NOVALGIN),?FREQUENCY: IF NEEDED, UP TO 4 TIMES PER DAY
     Route: 065
  4. PRADIF T [Concomitant]
     Active Substance: TAMSULOSIN HYDROCHLORIDE
     Indication: Product used for unknown indication
     Route: 065
  5. DAFALGAN [Concomitant]
     Active Substance: ACETAMINOPHEN
     Indication: Back pain
     Dosage: PARACETAMOL (DAFALGAN),?FREQUENCY: IF NEEDED, UP TO 4 TIMES PER DAY
     Route: 065
  6. LISINOPRIL [Concomitant]
     Active Substance: LISINOPRIL
     Indication: Product used for unknown indication
     Dosage: LISINOPRIL (LISTRIL)
     Route: 065

REACTIONS (2)
  - Escherichia urinary tract infection [Recovered/Resolved]
  - Prostatitis [Recovered/Resolved]

NARRATIVE: CASE EVENT DATE: 20240115
